FAERS Safety Report 9506313 (Version 1)
Quarter: 2013Q1

REPORT INFORMATION
  Report Type: Spontaneous
  Country: US (occurrence: None)
  Receive Date: 20130305
  Receipt Date: 20130305
  Transmission Date: 20140127
  Serious: Yes (Life-Threatening, Other)
  Sender: FDA-Public Use
  Company Number: 163-21880-12050440

PATIENT
  Age: 74 Year
  Sex: Male

DRUGS (8)
  1. REVLIMID (LENALIDOMIDE) (15 MILLIGRAM, CAPSULES) [Suspect]
     Indication: PLASMA CELL MYELOMA
     Dosage: 15 MG, X21 DAYS OFF 7 DAYS, PO
     Route: 048
     Dates: start: 20120404
  2. ACCUPRIL (QUINAPRIL HYDROCHLORIDE) [Concomitant]
  3. CRESTOR (ROSUVASTATIN) [Concomitant]
  4. CYMBALTA (DULOXETINE HYDROCHLORIDE) [Concomitant]
  5. FISH OIL (FISH OIL) [Concomitant]
  6. GABAPENTIN (GABAPENTIN) [Concomitant]
  7. VITAMINS [Concomitant]
  8. OMEPRAZOLE (OMEPRAZOLE) [Concomitant]

REACTIONS (1)
  - Thrombosis [None]
